FAERS Safety Report 25194952 (Version 2)
Quarter: 2025Q2

REPORT INFORMATION
  Report Type: Spontaneous
  Country: AT (occurrence: AT)
  Receive Date: 20250415
  Receipt Date: 20250416
  Transmission Date: 20250716
  Serious: Yes (Other)
  Sender: ABBVIE
  Company Number: AT-ABBVIE-6208220

PATIENT
  Sex: Female

DRUGS (1)
  1. ELAHERE [Suspect]
     Active Substance: MIRVETUXIMAB SORAVTANSINE-GYNX
     Indication: Ovarian cancer
     Route: 042
     Dates: start: 20250224

REACTIONS (6)
  - Muscle neoplasm [Unknown]
  - Gait disturbance [Unknown]
  - Pain in extremity [Unknown]
  - Lymphoedema [Unknown]
  - Oedema [Unknown]
  - Peripheral vein occlusion [Unknown]

NARRATIVE: CASE EVENT DATE: 20250101
